FAERS Safety Report 25881971 (Version 2)
Quarter: 2025Q4

REPORT INFORMATION
  Report Type: Report from Study
  Country: EU (occurrence: EU)
  Receive Date: 20251005
  Receipt Date: 20251201
  Transmission Date: 20260119
  Serious: Yes (Hospitalization)
  Sender: ABBVIE
  Company Number: EU-ABBVIE-6489136

PATIENT
  Age: 79 Year
  Sex: Female

DRUGS (1)
  1. FOSCARBIDOPA\FOSLEVODOPA [Suspect]
     Active Substance: FOSCARBIDOPA\FOSLEVODOPA
     Indication: Parkinson^s disease
     Dosage: DOSAGE: CRN: 0.15 ML/H, CR: 0.41 ML/H, CRH: 0.43 ML/H, ED: 0.15 ML
     Route: 058
     Dates: start: 20240909

REACTIONS (4)
  - Femoral neck fracture [Recovering/Resolving]
  - Fall [Unknown]
  - Mobility decreased [Not Recovered/Not Resolved]
  - On and off phenomenon [Not Recovered/Not Resolved]

NARRATIVE: CASE EVENT DATE: 20250901
